FAERS Safety Report 5191007-8 (Version None)
Quarter: 2006Q4

REPORT INFORMATION
  Report Type: 
  Country: None (occurrence: None)
  Receive Date: 20061214
  Receipt Date: 20061207
  Transmission Date: 20070319
  Serious: Yes (Hospitalization)
  Sender: FDA-Public Use
  Company Number: HQWYE578107DEC06

PATIENT
  Age: 78 Year
  Sex: Male

DRUGS (2)
  1. CORDARONE [Suspect]
     Dosage: 200 MG TABLET; DAILY DOSE AND FREQUENCY NOT  SPECIFIED; ORAL
     Route: 048
     Dates: start: 20060301, end: 20060501
  2. PREVISCAN            (FLUINDIONE, ) [Suspect]
     Dosage: 20 MG TABLET; DAILY DOSE AND FEQUENCY NOT SPECIFIED; ORAL
     Route: 048
     Dates: start: 20060514, end: 20060501

REACTIONS (10)
  - BIOPSY SKIN ABNORMAL [None]
  - DERMATITIS EXFOLIATIVE [None]
  - EOSINOPHILIA [None]
  - HYPERSENSITIVITY [None]
  - NEPHRITIS ALLERGIC [None]
  - PRURIGO [None]
  - PRURITUS [None]
  - RASH PAPULAR [None]
  - RENAL FAILURE [None]
  - SKIN DISORDER [None]
